FAERS Safety Report 19677479 (Version 1)
Quarter: 2021Q3

REPORT INFORMATION
  Report Type: Spontaneous
  Country: PR (occurrence: PR)
  Receive Date: 20210809
  Receipt Date: 20210809
  Transmission Date: 20211014
  Serious: No
  Sender: FDA-Public Use
  Company Number: PR-PFIZER INC-2021536039

PATIENT
  Age: 51 Year
  Sex: Female

DRUGS (1)
  1. XELJANZ XR [Suspect]
     Active Substance: TOFACITINIB CITRATE
     Dosage: 11 MG, DAILY
     Dates: start: 20210413

REACTIONS (5)
  - Arthralgia [Unknown]
  - Arthritis [Unknown]
  - Pain in extremity [Unknown]
  - Abdominal pain upper [Unknown]
  - Back pain [Unknown]
